FAERS Safety Report 9894615 (Version 3)
Quarter: 2014Q1

REPORT INFORMATION
  Report Type: Spontaneous
  Country: PT (occurrence: PT)
  Receive Date: 20140213
  Receipt Date: 20140327
  Transmission Date: 20141002
  Serious: Yes (Other)
  Sender: FDA-Public Use
  Company Number: PHHY2012PT105737

PATIENT
  Sex: 0

DRUGS (5)
  1. GILENYA [Suspect]
     Indication: MULTIPLE SCLEROSIS
     Route: 048
     Dates: start: 20120921
  2. ESCITALOPRAM [Concomitant]
     Dosage: 20 MG, QD
  3. CALCITRIOL [Concomitant]
     Dosage: 0.25 MG, QD
  4. FOLIC ACID [Concomitant]
     Dosage: 5 MG, QD
  5. CYANOCOBALAMIN [Concomitant]
     Dosage: 1 MG, QD

REACTIONS (3)
  - Blighted ovum [Unknown]
  - Abortion [Unknown]
  - Maternal exposure during pregnancy [Unknown]
